FAERS Safety Report 16811775 (Version 1)
Quarter: 2019Q3

REPORT INFORMATION
  Report Type: Spontaneous
  Country: US (occurrence: US)
  Receive Date: 20190916
  Receipt Date: 20190916
  Transmission Date: 20191005
  Serious: Yes (Hospitalization, Other)
  Sender: FDA-Public Use
  Company Number: US-ALLERGAN-1937139US

PATIENT
  Sex: Female
  Weight: 81.63 kg

DRUGS (6)
  1. GLYPRIDE [Concomitant]
     Active Substance: GLIMEPIRIDE
     Dosage: UNK
  2. GABAPENTIN. [Concomitant]
     Active Substance: GABAPENTIN
     Dosage: UNK
  3. ESTRACE [Suspect]
     Active Substance: ESTRADIOL
     Indication: URINARY TRACT INFECTION
     Dosage: UNK
     Route: 067
     Dates: start: 2016
  4. SERTRALINE [Concomitant]
     Active Substance: SERTRALINE HYDROCHLORIDE
     Dosage: UNK
  5. WARFARIN [Concomitant]
     Active Substance: WARFARIN
     Dosage: UNK
  6. ESTRADIOL UNK [Suspect]
     Active Substance: ESTRADIOL
     Indication: URINARY TRACT INFECTION

REACTIONS (4)
  - Myocardial infarction [Recovered/Resolved]
  - Internal haemorrhage [Recovered/Resolved]
  - Product prescribing error [Unknown]
  - Off label use [Unknown]

NARRATIVE: CASE EVENT DATE: 2016
